FAERS Safety Report 26130204 (Version 1)
Quarter: 2025Q4

REPORT INFORMATION
  Report Type: Spontaneous
  Country: US (occurrence: US)
  Receive Date: 20251208
  Receipt Date: 20251208
  Transmission Date: 20260118
  Serious: Yes (Death)
  Sender: MYLAN
  Company Number: US-MYLANLABS-2025M1102941

PATIENT
  Age: 53 Year
  Sex: Female

DRUGS (4)
  1. METHADONE [Suspect]
     Active Substance: METHADONE HYDROCHLORIDE
     Indication: Product used for unknown indication
     Dosage: 80 MILLIGRAM, QD
  2. METHADONE [Suspect]
     Active Substance: METHADONE HYDROCHLORIDE
     Dosage: UNK, DOSE TAPERED
  3. VALPROATE [Concomitant]
     Active Substance: VALPROIC ACID
     Indication: Bipolar disorder
     Dosage: UNK
  4. VALPROATE [Concomitant]
     Active Substance: VALPROIC ACID
     Dosage: UNK, DOSE REDUCED

REACTIONS (4)
  - Hypoglycaemia [Fatal]
  - Pulseless electrical activity [Fatal]
  - Ventricular fibrillation [Fatal]
  - Cardiac arrest [Fatal]
